FAERS Safety Report 7347329-5 (Version None)
Quarter: 2011Q1

REPORT INFORMATION
  Report Type: 
  Country: None (occurrence: None)
  Receive Date: 20110311
  Receipt Date: 20110304
  Transmission Date: 20110831
  Serious: Yes (Other)
  Sender: FDA-Public Use
  Company Number: CN-ROCHE-757867

PATIENT
  Age: 11 Year
  Sex: Male

DRUGS (3)
  1. PREDNISOLONE [Concomitant]
     Dosage: 60 MG ONCE EVERY OTHER DAY (QOD)
     Route: 048
  2. CALCIUM CARBONATE [Concomitant]
  3. CEFTRIAXONE SODIUM [Suspect]
     Dosage: INTRAVENOUS DRIP AT A DOSAGE OF 2 GM QD (IN 100 ML OF GLUCOSE)
     Route: 041

REACTIONS (1)
  - CHOLELITHIASIS [None]
